FAERS Safety Report 11502253 (Version 9)
Quarter: 2016Q1

REPORT INFORMATION
  Report Type: Report from Study
  Country: IT (occurrence: IT)
  Receive Date: 20150914
  Receipt Date: 20160219
  Transmission Date: 20160525
  Serious: Yes (Death, Hospitalization)
  Sender: FDA-Public Use
  Company Number: PHHY2015IT109329

PATIENT
  Age: 49 Year
  Sex: Female
  Weight: 70 kg

DRUGS (15)
  1. DELTACORTENE [Concomitant]
     Active Substance: PREDNISONE
     Dosage: 62.5 MG, QD
     Route: 065
  2. INTERFERON [Suspect]
     Active Substance: INTERFERON
     Indication: MULTIPLE SCLEROSIS
     Dosage: UNK
     Route: 065
     Dates: start: 2002, end: 201503
  3. CASPOFUNGINE [Concomitant]
     Indication: PRODUCT USED FOR UNKNOWN INDICATION
     Dosage: 50 MG, UNK
     Route: 065
     Dates: start: 20150506, end: 20150508
  4. SPIRONOLACTONE. [Concomitant]
     Active Substance: SPIRONOLACTONE
     Indication: OEDEMA PERIPHERAL
     Dosage: 25 MG, UNK
     Route: 048
     Dates: start: 20140820
  5. AMBISONE [Concomitant]
     Active Substance: AMPHOTERICIN B
     Indication: PRODUCT USED FOR UNKNOWN INDICATION
     Dosage: UNK
     Route: 065
     Dates: start: 20150508, end: 20150513
  6. STILNOX [Concomitant]
     Active Substance: ZOLPIDEM TARTRATE
     Indication: PRODUCT USED FOR UNKNOWN INDICATION
     Dosage: UNK
     Route: 065
  7. CEFTRIAXONE. [Concomitant]
     Active Substance: CEFTRIAXONE
     Indication: PRODUCT USED FOR UNKNOWN INDICATION
     Dosage: 2 G, UNK
     Route: 042
     Dates: start: 20150422, end: 20150423
  8. URBASON//METHYLPREDNISOLONE [Concomitant]
     Indication: PRODUCT USED FOR UNKNOWN INDICATION
     Dosage: 40 MG, UNK
     Route: 065
     Dates: start: 20150515, end: 20150519
  9. URBASON//METHYLPREDNISOLONE [Concomitant]
     Dosage: 80 MG, UNK
     Route: 065
     Dates: start: 20150520, end: 20150522
  10. ALANERV [Concomitant]
     Active Substance: DIETARY SUPPLEMENT
     Indication: PRODUCT USED FOR UNKNOWN INDICATION
     Dosage: 1 DF, UNK
     Route: 065
  11. GILENYA [Suspect]
     Active Substance: FINGOLIMOD HYDROCHLORIDE
     Indication: RELAPSING-REMITTING MULTIPLE SCLEROSIS
     Dosage: 0.5 MG, QD
     Route: 048
     Dates: start: 20131016, end: 20150319
  12. PANTOPRAZOLE [Concomitant]
     Active Substance: PANTOPRAZOLE SODIUM
     Indication: PRODUCT USED FOR UNKNOWN INDICATION
     Dosage: 40 MG, UNK
     Route: 065
  13. ALBUMIN [Concomitant]
     Active Substance: ALBUMIN (HUMAN)
     Indication: PRODUCT USED FOR UNKNOWN INDICATION
     Route: 065
  14. LASIX [Concomitant]
     Active Substance: FUROSEMIDE
     Indication: OEDEMA PERIPHERAL
     Dosage: 25 MG, (HALF TABLET)
     Route: 065
     Dates: start: 20140820
  15. DELTACORTENE [Concomitant]
     Active Substance: PREDNISONE
     Indication: PRODUCT USED FOR UNKNOWN INDICATION
     Dosage: 25 MG, UNK
     Route: 065

REACTIONS (41)
  - Hypofibrinogenaemia [Fatal]
  - Respiratory failure [Fatal]
  - Respiratory acidosis [Fatal]
  - Metabolic acidosis [Fatal]
  - Haemoglobin decreased [Unknown]
  - Prothrombin time shortened [Unknown]
  - Blood urea increased [Unknown]
  - Blood lactate dehydrogenase increased [Unknown]
  - Gamma-glutamyltransferase increased [Unknown]
  - Histiocytosis haematophagic [Fatal]
  - Hypertriglyceridaemia [Fatal]
  - Serum ferritin increased [Fatal]
  - Red blood cell count decreased [Unknown]
  - Hepatitis B antibody positive [Unknown]
  - Acute respiratory distress syndrome [Fatal]
  - Atelectasis [Fatal]
  - Creatinine urine decreased [Unknown]
  - Aspartate aminotransferase increased [Unknown]
  - Sepsis [Fatal]
  - Creatinine renal clearance decreased [Unknown]
  - Urine sodium increased [Unknown]
  - Urine potassium increased [Unknown]
  - Lung consolidation [Fatal]
  - Bone marrow failure [Fatal]
  - Haematocrit decreased [Unknown]
  - Reticulocyte count decreased [Unknown]
  - Antithrombin III increased [Unknown]
  - Blood triglycerides increased [Unknown]
  - White blood cell count decreased [Unknown]
  - Splenomegaly [Fatal]
  - Chest X-ray abnormal [Fatal]
  - Hyperpyrexia [Fatal]
  - Blood creatinine decreased [Unknown]
  - Blood uric acid increased [Unknown]
  - Cytopenia [Fatal]
  - Multiple organ dysfunction syndrome [Fatal]
  - Fibrin D dimer increased [Unknown]
  - B-cell lymphoma [Fatal]
  - Septic shock [Fatal]
  - Neutrophil count increased [Unknown]
  - Blood alkaline phosphatase increased [Unknown]

NARRATIVE: CASE EVENT DATE: 20150724
